FAERS Safety Report 19585326 (Version 1)
Quarter: 2021Q3

REPORT INFORMATION
  Report Type: Spontaneous
  Country: US (occurrence: US)
  Receive Date: 20210720
  Receipt Date: 20210720
  Transmission Date: 20211014
  Serious: Yes (Death)
  Sender: FDA-Public Use
  Company Number: US-CELGENEUS-USA-20210704327

PATIENT
  Age: 80 Year
  Sex: Male

DRUGS (1)
  1. INREBIC [Suspect]
     Active Substance: FEDRATINIB HYDROCHLORIDE
     Indication: MYELOPROLIFERATIVE NEOPLASM
     Dosage: DOSE : 200MG;     FREQ : DAILY
     Route: 048
     Dates: start: 20200109

REACTIONS (1)
  - Death [Fatal]

NARRATIVE: CASE EVENT DATE: 20210304
